FAERS Safety Report 19482773 (Version 1)
Quarter: 2021Q3

REPORT INFORMATION
  Report Type: Spontaneous
  Country: CA (occurrence: CA)
  Receive Date: 20210701
  Receipt Date: 20210701
  Transmission Date: 20211014
  Serious: Yes (Other)
  Sender: FDA-Public Use
  Company Number: CA-TEVA-2021-CA-1926836

PATIENT
  Sex: Female

DRUGS (1)
  1. TEVA?PROGESTERONE [Suspect]
     Active Substance: PROGESTERONE

REACTIONS (5)
  - Postmenopausal haemorrhage [Unknown]
  - Sleep disorder [Unknown]
  - Irritability [Unknown]
  - Affective disorder [Unknown]
  - Therapeutic product ineffective [Unknown]
